FAERS Safety Report 6509716-4 (Version None)
Quarter: 2009Q4

REPORT INFORMATION
  Report Type: 
  Country: None (occurrence: None)
  Receive Date: 20091222
  Receipt Date: 20091220
  Transmission Date: 20100525
  Serious: Yes (Other)
  Sender: FDA-Public Use
  Company Number: US-BAYER-200942960NA

PATIENT
  Age: 32 Year
  Sex: Female

DRUGS (1)
  1. YASMIN [Suspect]
     Indication: CONTRACEPTION
     Dates: start: 20061101, end: 20061201

REACTIONS (4)
  - BRAIN INJURY [None]
  - CEREBRAL ARTERY EMBOLISM [None]
  - CEREBRAL VENOUS THROMBOSIS [None]
  - COMPLICATION OF PREGNANCY [None]
